FAERS Safety Report 14420017 (Version 1)
Quarter: 2018Q1

REPORT INFORMATION
  Report Type: Spontaneous
  Country: JP (occurrence: JP)
  Receive Date: 20180122
  Receipt Date: 20180122
  Transmission Date: 20180509
  Serious: Yes (Other)
  Sender: FDA-Public Use
  Company Number: JP-PFIZER INC-2018025078

PATIENT
  Age: 73 Year
  Sex: Male
  Weight: 61.8 kg

DRUGS (11)
  1. ZITHROMAC 250MG [Suspect]
     Active Substance: AZITHROMYCIN DIHYDRATE
     Indication: DENTAL CARE
     Dosage: 2 DF, 1X/DAY
     Route: 048
     Dates: start: 20171201, end: 20171203
  2. TRESIBA [Concomitant]
     Active Substance: INSULIN DEGLUDEC
     Dosage: UNK
  3. CAMOSTAT MESILATE [Concomitant]
     Active Substance: CAMOSTAT MESYLATE
     Dosage: UNK
  4. AVOLVE [Concomitant]
     Active Substance: DUTASTERIDE
     Dosage: UNK
  5. NEXIUM [Concomitant]
     Active Substance: ESOMEPRAZOLE MAGNESIUM
     Dosage: UNK
  6. POSTERISAN [Concomitant]
     Active Substance: LIDOCAINE
     Dosage: UNK
  7. BIO-THREE [Concomitant]
     Active Substance: HERBALS
     Dosage: UNK
  8. NOVORAPID [Concomitant]
     Active Substance: INSULIN ASPART
     Dosage: UNK
  9. EXCELASE [Concomitant]
     Active Substance: PANCRELIPASE
     Dosage: UNK
  10. REBAMIPIDE [Concomitant]
     Active Substance: REBAMIPIDE
     Dosage: UNK
  11. XELODA [Concomitant]
     Active Substance: CAPECITABINE
     Dosage: UNK

REACTIONS (1)
  - Blood glucose increased [Recovered/Resolved]

NARRATIVE: CASE EVENT DATE: 20171201
